FAERS Safety Report 5999162-4 (Version None)
Quarter: 2008Q4

REPORT INFORMATION
  Report Type: 
  Country: None (occurrence: None)
  Receive Date: 20081215
  Receipt Date: 20080730
  Transmission Date: 20090506
  Serious: No
  Sender: FDA-Public Use
  Company Number: US-AMGEN-KDL298250

PATIENT
  Sex: Female

DRUGS (4)
  1. ENBREL [Suspect]
     Indication: RHEUMATOID ARTHRITIS
  2. PREDNISONE TAB [Concomitant]
  3. FORTEO [Concomitant]
  4. ATENOLOL [Concomitant]

REACTIONS (3)
  - COUGH [None]
  - EYE HAEMORRHAGE [None]
  - SINUS CONGESTION [None]
